FAERS Safety Report 6412805-6 (Version None)
Quarter: 2009Q4

REPORT INFORMATION
  Report Type: 
  Country: None (occurrence: None)
  Receive Date: 20091023
  Receipt Date: 20091008
  Transmission Date: 20100525
  Serious: Yes (Other)
  Sender: FDA-Public Use
  Company Number: CA-GENENTECH-276938

PATIENT
  Sex: Male
  Weight: 95.2 kg

DRUGS (3)
  1. OMALIZUMAB [Suspect]
     Indication: ASTHMA
     Dosage: 300 MG, 1/MONTH
     Route: 058
     Dates: start: 20080131
  2. OMALIZUMAB [Suspect]
     Dosage: 300 MG, 1/MONTH
     Route: 058
     Dates: start: 20091008
  3. STEROIDS NOS [Concomitant]
     Indication: DRUG USE FOR UNKNOWN INDICATION

REACTIONS (3)
  - ASTHMA [None]
  - POLYP [None]
  - PRODUCTIVE COUGH [None]
